FAERS Safety Report 5326622-1 (Version None)
Quarter: 2007Q2

REPORT INFORMATION
  Report Type: 
  Country: None (occurrence: None)
  Receive Date: 20070516
  Receipt Date: 20070504
  Transmission Date: 20071010
  Serious: Yes (Other)
  Sender: FDA-Public Use
  Company Number: NO-PFIZER INC-2007036928

PATIENT
  Sex: Female

DRUGS (2)
  1. LYRICA [Suspect]
     Route: 048
  2. REMERON [Concomitant]

REACTIONS (1)
  - PERONEAL NERVE PALSY [None]
